FAERS Safety Report 5113408-6 (Version None)
Quarter: 2006Q3

REPORT INFORMATION
  Report Type: 
  Country: None (occurrence: None)
  Receive Date: 20060920
  Receipt Date: 20060905
  Transmission Date: 20061208
  Serious: Yes (Other)
  Sender: FDA-Public Use
  Company Number: 229775

PATIENT
  Sex: Male

DRUGS (2)
  1. XOLAIR [Suspect]
     Indication: DRUG USE FOR UNKNOWN INDICATION
     Dosage: 300 MG
  2. ANTIHYPERTENSIVE            (ANTIHYPERTENSIVE NOS) [Concomitant]

REACTIONS (2)
  - HYPERTENSION [None]
  - PERIPHERAL VASCULAR DISORDER [None]
